FAERS Safety Report 16641820 (Version 1)
Quarter: 2019Q3

REPORT INFORMATION
  Report Type: Spontaneous
  Country: US (occurrence: US)
  Receive Date: 20190729
  Receipt Date: 20190729
  Transmission Date: 20191004
  Serious: No
  Sender: FDA-Public Use
  Company Number: PHEH2019US030781

PATIENT
  Sex: Female

DRUGS (2)
  1. AFINITOR [Suspect]
     Active Substance: EVEROLIMUS
     Indication: RENAL CANCER
     Dosage: UNK UNK, QD
     Route: 048
  2. LENVATINIB [Suspect]
     Active Substance: LENVATINIB
     Indication: RENAL CANCER
     Dosage: 18 MG, QD
     Route: 048

REACTIONS (11)
  - Protein urine [Unknown]
  - Blood lactate dehydrogenase increased [Unknown]
  - Calcium ionised decreased [Unknown]
  - Fatigue [Unknown]
  - Sleep disorder [Unknown]
  - Diarrhoea [Unknown]
  - Pain of skin [Unknown]
  - Eosinophil count decreased [Unknown]
  - Macule [Unknown]
  - Acne [Unknown]
  - Skin infection [Unknown]
